FAERS Safety Report 7093302-4 (Version None)
Quarter: 2010Q4

REPORT INFORMATION
  Report Type: 
  Country: None (occurrence: None)
  Receive Date: 20101018
  Receipt Date: 20100409
  Transmission Date: 20110411
  Serious: Yes (Other)
  Sender: FDA-Public Use
  Company Number: HQWYE189016JUL04

PATIENT
  Age: 60 Year
  Sex: Female
  Weight: 49.94 kg

DRUGS (1)
  1. PREMARIN [Suspect]
     Indication: HORMONE REPLACEMENT THERAPY
     Dosage: ORAL
     Route: 048
     Dates: start: 19740101, end: 20020101

REACTIONS (2)
  - LUNG DISORDER [None]
  - PULMONARY EMBOLISM [None]
